FAERS Safety Report 5450055-0 (Version None)
Quarter: 2007Q3

REPORT INFORMATION
  Report Type: 
  Country: None (occurrence: None)
  Receive Date: 20070912
  Receipt Date: 20070911
  Transmission Date: 20080115
  Serious: Yes (Hospitalization)
  Sender: FDA-Public Use
  Company Number: A0679921A

PATIENT
  Age: 54 Year
  Sex: Female

DRUGS (4)
  1. EQUATE NTS [Suspect]
     Indication: SMOKING CESSATION THERAPY
     Route: 062
  2. IMITREX [Suspect]
     Route: 065
  3. ANTIBIOTICS [Suspect]
  4. MORPHINE [Concomitant]

REACTIONS (22)
  - APPLICATION SITE BURN [None]
  - APPLICATION SITE ERYTHEMA [None]
  - APPLICATION SITE PRURITUS [None]
  - APPLICATION SITE RASH [None]
  - APPLICATION SITE REACTION [None]
  - APPLICATION SITE SWELLING [None]
  - CARDIAC FAILURE CONGESTIVE [None]
  - DEPRESSED LEVEL OF CONSCIOUSNESS [None]
  - DRUG INEFFECTIVE [None]
  - FEELING ABNORMAL [None]
  - GINGIVAL BLEEDING [None]
  - GINGIVAL SWELLING [None]
  - HYPERSOMNIA [None]
  - JAW DISORDER [None]
  - MALAISE [None]
  - MIGRAINE [None]
  - OEDEMA PERIPHERAL [None]
  - ORAL DISCOMFORT [None]
  - ORAL INFECTION [None]
  - ORAL PAIN [None]
  - PAIN IN JAW [None]
  - VOMITING [None]
